FAERS Safety Report 14160299 (Version 1)
Quarter: 2017Q4

REPORT INFORMATION
  Report Type: Report from Study
  Country: US (occurrence: US)
  Receive Date: 20171106
  Receipt Date: 20171106
  Transmission Date: 20180321
  Serious: Yes (Other)
  Sender: FDA-Public Use
  Company Number: US-ROCHE-2015849

PATIENT

DRUGS (4)
  1. CAPECITABINE. [Suspect]
     Active Substance: CAPECITABINE
     Indication: METASTATIC RENAL CELL CARCINOMA
     Dosage: ADMINISTERED 2 WEEKS ON, 1 WEEK OFF.
     Route: 048
  2. INTERFERON ALFA-2A [Suspect]
     Active Substance: INTERFERON ALFA-2A
     Indication: METASTATIC RENAL CELL CARCINOMA
     Route: 058
  3. THALIDOMIDE [Suspect]
     Active Substance: THALIDOMIDE
     Dosage: ESCALATED ON DAY 8.
     Route: 048
  4. THALIDOMIDE [Suspect]
     Active Substance: THALIDOMIDE
     Indication: METASTATIC RENAL CELL CARCINOMA
     Route: 048

REACTIONS (13)
  - Fatigue [Unknown]
  - Exfoliative rash [Unknown]
  - Paraesthesia [Unknown]
  - Haemoptysis [Unknown]
  - Anaemia [Unknown]
  - Tumour pain [Unknown]
  - Dyspnoea [Unknown]
  - Deep vein thrombosis [Unknown]
  - Epistaxis [Unknown]
  - Tremor [Unknown]
  - Chest pain [Unknown]
  - Metabolic acidosis [Unknown]
  - Palmar-plantar erythrodysaesthesia syndrome [Unknown]
